FAERS Safety Report 18767501 (Version 1)
Quarter: 2021Q1

REPORT INFORMATION
  Report Type: Spontaneous
  Country: US (occurrence: US)
  Receive Date: 20210121
  Receipt Date: 20210121
  Transmission Date: 20210419
  Serious: Yes (Hospitalization)
  Sender: FDA-Public Use
  Company Number: None

PATIENT
  Sex: Female

DRUGS (1)
  1. BOTOX [Suspect]
     Active Substance: ONABOTULINUMTOXINA
     Indication: MIGRAINE
     Dosage: ?          OTHER FREQUENCY:EVERY 90 DAYS;OTHER ROUTE:INJECTED INTO HEAD?
     Dates: start: 20180206

REACTIONS (3)
  - Headache [None]
  - Moyamoya disease [None]
  - Cerebrovascular operation [None]
